FAERS Safety Report 11468515 (Version 2)
Quarter: 2015Q3

REPORT INFORMATION
  Report Type: Spontaneous
  Country: US (occurrence: US)
  Receive Date: 20150903
  Receipt Date: 20150903
  Transmission Date: 20151125
  Serious: No
  Sender: FDA-Public Use
  Company Number: US-ELI_LILLY_AND_COMPANY-US201109007579

PATIENT
  Age: 41 Year
  Sex: Female

DRUGS (4)
  1. CYMBALTA [Suspect]
     Active Substance: DULOXETINE HYDROCHLORIDE
     Indication: GENERALISED ANXIETY DISORDER
     Dosage: 60 MG, BID
     Dates: start: 2004
  2. CYMBALTA [Suspect]
     Active Substance: DULOXETINE HYDROCHLORIDE
     Dosage: 60 MG, QD
  3. ZIAC [Concomitant]
     Active Substance: BISOPROLOL FUMARATE\HYDROCHLOROTHIAZIDE
     Indication: HYPERTENSION
  4. KLONOPIN [Concomitant]
     Active Substance: CLONAZEPAM
     Indication: ANXIETY
     Dosage: UNK, PRN

REACTIONS (20)
  - Abdominal pain upper [Unknown]
  - Intentional product misuse [Unknown]
  - Depressed mood [Unknown]
  - Heart rate increased [Unknown]
  - Anxiety [Unknown]
  - Cognitive disorder [Unknown]
  - Vomiting [Unknown]
  - Crying [Unknown]
  - Hypopnoea [Unknown]
  - Eating disorder [Unknown]
  - Paraesthesia [Unknown]
  - Anger [Unknown]
  - Drug dose omission [Unknown]
  - Pain [Unknown]
  - Nausea [Unknown]
  - Drug withdrawal syndrome [Unknown]
  - Diarrhoea [Unknown]
  - Headache [Unknown]
  - Emotional disorder [Unknown]
  - Mental disorder [Unknown]
